FAERS Safety Report 14854078 (Version 1)
Quarter: 2018Q2

REPORT INFORMATION
  Report Type: Spontaneous
  Country: FR (occurrence: FR)
  Receive Date: 20180507
  Receipt Date: 20180507
  Transmission Date: 20180711
  Serious: Yes (Other)
  Sender: FDA-Public Use
  Company Number: FR-ABBVIE-18K-056-2317528-00

PATIENT
  Age: 26 Year
  Sex: Female

DRUGS (1)
  1. HUMIRA [Suspect]
     Active Substance: ADALIMUMAB
     Indication: ABDOMINAL PAIN
     Route: 058
     Dates: start: 20180205, end: 20180330

REACTIONS (3)
  - Pruritus generalised [Recovered/Resolved]
  - Injection site induration [Recovered/Resolved]
  - Injection site eczema [Recovered/Resolved]

NARRATIVE: CASE EVENT DATE: 2018
